FAERS Safety Report 15000209 (Version 1)
Quarter: 2018Q2

REPORT INFORMATION
  Report Type: Spontaneous
  Country: US (occurrence: US)
  Receive Date: 20180612
  Receipt Date: 20180612
  Transmission Date: 20180711
  Serious: Yes (Other)
  Sender: FDA-Public Use
  Company Number: US-GLAXOSMITHKLINE-US2018103142

PATIENT
  Sex: Female

DRUGS (7)
  1. LATANOPROST. [Concomitant]
     Active Substance: LATANOPROST
  2. ANORO ELLIPTA [Suspect]
     Active Substance: UMECLIDINIUM BROMIDE\VILANTEROL TRIFENATATE
     Indication: CHRONIC OBSTRUCTIVE PULMONARY DISEASE
     Dosage: 1 PUFF(S), QD
     Route: 055
  3. ATIVAN [Concomitant]
     Active Substance: LORAZEPAM
     Indication: INSOMNIA
     Dosage: UNK, PRN
  4. ALBUTEROL + IPRATROPIUM [Concomitant]
     Active Substance: ALBUTEROL\IPRATROPIUM
  5. LISINOPRIL. [Concomitant]
     Active Substance: LISINOPRIL
  6. OXYGEN. [Concomitant]
     Active Substance: OXYGEN
  7. IRON [Concomitant]
     Active Substance: IRON

REACTIONS (7)
  - Visual impairment [Unknown]
  - Secretion discharge [Unknown]
  - Oxygen saturation decreased [Unknown]
  - Dyspnoea [Unknown]
  - Asthenia [Unknown]
  - Decreased activity [Unknown]
  - Neuropathy peripheral [Unknown]
